FAERS Safety Report 6543426-2 (Version None)
Quarter: 2010Q1

REPORT INFORMATION
  Report Type: 
  Country: None (occurrence: None)
  Receive Date: 20100120
  Receipt Date: 20091201
  Transmission Date: 20100710
  Serious: Yes (Hospitalization)
  Sender: FDA-Public Use
  Company Number: A0407666A

PATIENT
  Age: 78 Year
  Sex: Male
  Weight: 83.2 kg

DRUGS (11)
  1. AVANDIA [Suspect]
     Dosage: 4MG PER DAY
     Route: 048
     Dates: start: 20021216, end: 20040410
  2. HYDROCHLOROTHIAZIDE [Concomitant]
  3. LASIX [Concomitant]
  4. VIOXX [Concomitant]
  5. IRBESARTAN [Concomitant]
  6. ZAROXOLYN [Concomitant]
  7. SIMVASTATIN [Concomitant]
  8. METOLAZONE [Concomitant]
  9. IRBESARTAN [Concomitant]
  10. TERAZOSIN HCL [Concomitant]
  11. GLYBURIDE [Concomitant]

REACTIONS (7)
  - CARDIAC FAILURE CONGESTIVE [None]
  - CARDIOMYOPATHY [None]
  - CORONARY ANGIOPLASTY [None]
  - FLUID RETENTION [None]
  - GAIT DISTURBANCE [None]
  - LUNG DISORDER [None]
  - WEIGHT INCREASED [None]
